FAERS Safety Report 8690559 (Version 3)
Quarter: 2013Q2

REPORT INFORMATION
  Report Type: Spontaneous
  Country: US (occurrence: US)
  Receive Date: 20120727
  Receipt Date: 20130501
  Transmission Date: 20140414
  Serious: Yes (Other)
  Sender: FDA-Public Use
  Company Number: US-ASTRAZENECA-2012SE28639

PATIENT
  Age: 42 Year
  Sex: Female
  Weight: 108.9 kg

DRUGS (4)
  1. SEROQUEL XR [Suspect]
     Indication: DEPRESSION
     Route: 048
     Dates: start: 2011, end: 201302
  2. EFFEXOR [Concomitant]
     Indication: DEPRESSION
  3. TOPAMAX [Concomitant]
  4. ORAL CONTRACEPTIVES [Concomitant]
     Indication: CONTRACEPTION
     Dosage: DAILY
     Route: 048

REACTIONS (4)
  - Suicidal ideation [Unknown]
  - Depression [Unknown]
  - Therapeutic response decreased [Unknown]
  - Drug dose omission [Unknown]
